FAERS Safety Report 7714076-7 (Version None)
Quarter: 2011Q3

REPORT INFORMATION
  Report Type: 
  Country: None (occurrence: None)
  Receive Date: 20110826
  Receipt Date: 20110817
  Transmission Date: 20111222
  Serious: Yes (Hospitalization, Other)
  Sender: FDA-Public Use
  Company Number: US-ASTRAZENECA-2011SE26247

PATIENT
  Age: 54 Year
  Sex: Male

DRUGS (18)
  1. PULMICORT FLEXHALER [Suspect]
     Dosage: AS NEEDED
     Route: 055
  2. STARLIX [Concomitant]
  3. LORATADINE [Concomitant]
  4. NOVOLIN R [Concomitant]
     Dosage: 15 UNITS IN THE AM 15 UNITS AT NOON, 15 UNITS PM AND 15 UNITS HS
  5. FLONASE [Concomitant]
     Dosage: DAILY
  6. NIFEDIPINE [Concomitant]
     Dosage: Q12 H
  7. LANTUS [Concomitant]
     Dosage: 50 UNITS AM AND 23 UNITS PM
  8. NIASPAN [Concomitant]
  9. PLAVIX [Concomitant]
  10. REGLAN [Concomitant]
  11. BYETTA [Concomitant]
     Dosage: 5 UNITS QPM
  12. TRAVATAN [Concomitant]
  13. ULTRACET [Concomitant]
  14. LOTRISONE [Concomitant]
  15. LISINOPRIL [Concomitant]
  16. VYTORIN [Concomitant]
     Dosage: 10/40
  17. ACTOS [Concomitant]
  18. ASPIRIN [Concomitant]

REACTIONS (6)
  - BACK PAIN [None]
  - CARDIOMEGALY [None]
  - DYSPNOEA [None]
  - ACUTE MYOCARDIAL INFARCTION [None]
  - CORONARY ARTERIAL STENT INSERTION [None]
  - BRONCHITIS CHRONIC [None]
